FAERS Safety Report 8885934 (Version 1)
Quarter: 2012Q4

REPORT INFORMATION
  Report Type: 
  Country: CN (occurrence: CN)
  Receive Date: 20121105
  Receipt Date: 20121105
  Transmission Date: 20130627
  Serious: Yes (Other)
  Sender: FDA-Public Use
  Company Number: PHHY2012CN100495

PATIENT
  Age: 79 Year
  Sex: Female
  Weight: 65 kg

DRUGS (3)
  1. ACLASTA [Suspect]
     Indication: OSTEOPOROSIS
     Dosage: 5 mg, per year
     Route: 042
     Dates: start: 20121031
  2. TANSHINON [Concomitant]
     Dosage: 10ml (50mg)
     Route: 042
     Dates: start: 20121027, end: 20121102
  3. CALCIUM GLUCONATE [Concomitant]
     Indication: OSTEOPOROSIS
     Dosage: 20ml(4g)
     Route: 042
     Dates: start: 20121027, end: 20121102

REACTIONS (5)
  - Oliguria [Recovered/Resolved]
  - Pyrexia [Recovered/Resolved]
  - Chills [Recovered/Resolved]
  - Nausea [Recovered/Resolved]
  - Vomiting [Recovered/Resolved]
